FAERS Safety Report 4594163-5 (Version None)
Quarter: 2005Q1

REPORT INFORMATION
  Report Type: 
  Country: None (occurrence: None)
  Receive Date: 20050222
  Receipt Date: 20050204
  Transmission Date: 20050727
  Serious: Yes (Hospitalization)
  Sender: FDA-Public Use
  Company Number: CA-SHR-04-023322

PATIENT
  Age: 44 Year
  Sex: Female

DRUGS (8)
  1. BETASERON [Suspect]
     Indication: RELAPSING-REMITTING MULTIPLE SCLEROSIS
     Dosage: 8 MIU, EVERY 2D, SUBCUTANEOUS
     Route: 058
     Dates: start: 19940313
  2. VENTOLIN [Concomitant]
  3. FLOVENT [Concomitant]
  4. VALPROIC ACID (RATIO-) (VALPROIC ACID) [Concomitant]
  5. CLOBAZAM (RATIO-)(CLOBAZAM) [Concomitant]
  6. METOCLOPRAMIDE [Concomitant]
  7. RABEPRAZOLE SODIUM [Concomitant]
  8. EMLA CREAM (PRILOCAINE) CREAM [Concomitant]

REACTIONS (15)
  - ABDOMINAL PAIN UPPER [None]
  - ASTHENIA [None]
  - BURNING SENSATION [None]
  - CHOLELITHIASIS [None]
  - CONDITION AGGRAVATED [None]
  - DECREASED APPETITE [None]
  - INJECTION SITE IRRITATION [None]
  - MULTIPLE SCLEROSIS [None]
  - NAUSEA [None]
  - ORAL INTAKE REDUCED [None]
  - PAIN IN EXTREMITY [None]
  - PNEUMONIA [None]
  - POST PROCEDURAL COMPLICATION [None]
  - PROCEDURAL COMPLICATION [None]
  - WEIGHT DECREASED [None]
